FAERS Safety Report 12987045 (Version 1)
Quarter: 2016Q4

REPORT INFORMATION
  Report Type: Spontaneous
  Country: BR (occurrence: BR)
  Receive Date: 20161130
  Receipt Date: 20161130
  Transmission Date: 20170207
  Serious: Yes (Other)
  Sender: FDA-Public Use
  Company Number: BR-009507513-1506BRA002436

PATIENT
  Age: 33 Year
  Sex: Female
  Weight: 67 kg

DRUGS (3)
  1. MERCILON [Suspect]
     Active Substance: DESOGESTREL\ETHINYL ESTRADIOL
     Indication: MENSTRUAL CYCLE MANAGEMENT
  2. MERCILON [Suspect]
     Active Substance: DESOGESTREL\ETHINYL ESTRADIOL
     Indication: CONTRACEPTION
     Dosage: 3 WEEKS OF USE AND 1 WEEK OF PAUSE
     Route: 048
     Dates: start: 2004
  3. HORSE CHESTNUT [Concomitant]
     Active Substance: HORSE CHESTNUT

REACTIONS (14)
  - Haemorrhoids [Not Recovered/Not Resolved]
  - Inappropriate schedule of drug administration [Unknown]
  - Accidental overdose [Unknown]
  - Vaginal discharge [Unknown]
  - Inappropriate schedule of drug administration [Unknown]
  - Noninfective oophoritis [Unknown]
  - Oropharyngeal pain [Recovering/Resolving]
  - Accidental overdose [Unknown]
  - Inappropriate schedule of drug administration [Unknown]
  - Inappropriate schedule of drug administration [Unknown]
  - Withdrawal bleed [Not Recovered/Not Resolved]
  - Fungal infection [Not Recovered/Not Resolved]
  - Overdose [Unknown]
  - Accidental overdose [Unknown]

NARRATIVE: CASE EVENT DATE: 2004
